FAERS Safety Report 5168955-8 (Version None)
Quarter: 2006Q4

REPORT INFORMATION
  Report Type: 
  Country: None (occurrence: None)
  Receive Date: 20061211
  Receipt Date: 20060316
  Transmission Date: 20070319
  Serious: Yes (Hospitalization)
  Sender: FDA-Public Use
  Company Number: FR-GLAXOSMITHKLINE-B0416121A

PATIENT
  Age: 28 Year
  Sex: Female

DRUGS (5)
  1. WELLVONE [Suspect]
     Indication: CEREBRAL TOXOPLASMOSIS
     Dosage: 750MG SEE DOSAGE TEXT
     Route: 048
     Dates: start: 20060119, end: 20060210
  2. ZOVIRAX [Suspect]
     Indication: HERPES SIMPLEX
     Dosage: 500MG THREE TIMES PER DAY
     Route: 042
     Dates: start: 20060211, end: 20060219
  3. ALTHIAZIDE [Concomitant]
     Indication: CEREBRAL TOXOPLASMOSIS
     Route: 048
     Dates: start: 20051215, end: 20051201
  4. PYRIMETHAMINE TAB [Concomitant]
     Indication: CEREBRAL TOXOPLASMOSIS
     Route: 065
     Dates: start: 20051215, end: 20060101
  5. HYDRALAZINE HCL [Concomitant]
     Indication: CEREBRAL TOXOPLASMOSIS
     Route: 065
     Dates: start: 20051201, end: 20060101

REACTIONS (15)
  - ALANINE AMINOTRANSFERASE INCREASED [None]
  - APLASIA [None]
  - ASPARTATE AMINOTRANSFERASE INCREASED [None]
  - BLOOD ALKALINE PHOSPHATASE INCREASED [None]
  - DIZZINESS [None]
  - DRUG RASH WITH EOSINOPHILIA AND SYSTEMIC SYMPTOMS [None]
  - GAMMA-GLUTAMYLTRANSFERASE INCREASED [None]
  - HEADACHE [None]
  - HEPATITIS ACUTE [None]
  - PRURIGO [None]
  - PYREXIA [None]
  - RASH MACULO-PAPULAR [None]
  - RENAL FAILURE ACUTE [None]
  - SKIN DISORDER [None]
  - SKIN LESION [None]
